FAERS Safety Report 7960421-7 (Version None)
Quarter: 2011Q4

REPORT INFORMATION
  Report Type: 
  Country: None (occurrence: None)
  Receive Date: 20111206
  Receipt Date: 20111202
  Transmission Date: 20120403
  Serious: Yes (Hospitalization)
  Sender: FDA-Public Use
  Company Number: DE-PFIZER INC-2011100547

PATIENT
  Age: 42 Year
  Sex: Male
  Weight: 100 kg

DRUGS (6)
  1. SIMVASTATIN [Suspect]
     Indication: ACUTE MYOCARDIAL INFARCTION
     Dosage: 40 MG, 1X/DAY
     Route: 048
     Dates: start: 20110325, end: 20110415
  2. RAMIPRIL [Suspect]
     Indication: ACUTE MYOCARDIAL INFARCTION
     Dosage: 5 MG, 2X/DAY
     Route: 048
     Dates: start: 20110325, end: 20110418
  3. ACETAMINOPHEN [Suspect]
     Indication: PAIN
     Dosage: 500 MG, 2X/DAY
     Route: 048
     Dates: start: 20110414, end: 20110417
  4. PLAVIX [Concomitant]
     Indication: STENT PLACEMENT
     Dosage: 75 MG, 1X/DAY
     Route: 048
     Dates: start: 20110325
  5. METOPROLOL [Concomitant]
     Indication: ACUTE MYOCARDIAL INFARCTION
     Dosage: 47.5 MG, 1X/DAY
     Route: 048
     Dates: start: 20110325
  6. ASPIRIN [Concomitant]
     Indication: STENT PLACEMENT
     Dosage: 100 MG, 1X/DAY
     Route: 048
     Dates: start: 20110325

REACTIONS (5)
  - CHOLECYSTITIS CHRONIC [None]
  - HEPATOTOXICITY [None]
  - CHOLELITHIASIS [None]
  - LIVER INJURY [None]
  - ACUTE HEPATIC FAILURE [None]
